FAERS Safety Report 8221038-2 (Version None)
Quarter: 2012Q1

REPORT INFORMATION
  Report Type: 
  Country: None (occurrence: None)
  Receive Date: 20120320
  Receipt Date: 20120314
  Transmission Date: 20120608
  Serious: Yes (Hospitalization)
  Sender: FDA-Public Use
  Company Number: US-PFIZER INC-2012068158

PATIENT
  Sex: Female
  Weight: 43.54 kg

DRUGS (1)
  1. PREMARIN [Suspect]
     Indication: HORMONE REPLACEMENT THERAPY
     Dosage: 0.625 MG, DAILY

REACTIONS (5)
  - RESPIRATORY DISORDER [None]
  - EMOTIONAL DISORDER [None]
  - CHRONIC OBSTRUCTIVE PULMONARY DISEASE [None]
  - ENDODONTIC PROCEDURE [None]
  - WISDOM TEETH REMOVAL [None]
